FAERS Safety Report 20189076 (Version 2)
Quarter: 2022Q2

REPORT INFORMATION
  Report Type: Spontaneous
  Country: AM (occurrence: None)
  Receive Date: 20211215
  Receipt Date: 20220525
  Transmission Date: 20220721
  Serious: Yes (Death, Hospitalization, Other)
  Sender: FDA-Public Use
  Company Number: AM-ROCHE-2974402

PATIENT
  Age: 59 Year
  Sex: Male

DRUGS (2)
  1. TECENTRIQ [Suspect]
     Active Substance: ATEZOLIZUMAB
     Indication: Hepatocellular carcinoma
     Dosage: DATE OF LAST DOSE: 07/OCT/2021
     Route: 041
     Dates: start: 20210908
  2. AVASTIN [Suspect]
     Active Substance: BEVACIZUMAB
     Indication: Hepatocellular carcinoma
     Dosage: DATE OF LAST DOSE: 07/OCT/2021
     Route: 042
     Dates: start: 20210908

REACTIONS (7)
  - Death [Fatal]
  - COVID-19 pneumonia [Unknown]
  - Encephalopathy [Unknown]
  - Ascites [Unknown]
  - Coagulation time prolonged [Unknown]
  - Alanine aminotransferase increased [Unknown]
  - COVID-19 [Unknown]
